FAERS Safety Report 7755586-6 (Version None)
Quarter: 2011Q3

REPORT INFORMATION
  Report Type: 
  Country: None (occurrence: None)
  Receive Date: 20110914
  Receipt Date: 20110830
  Transmission Date: 20111222
  Serious: Yes (Hospitalization)
  Sender: FDA-Public Use
  Company Number: VALP20110008

PATIENT
  Age: 15 Year
  Sex: Male

DRUGS (1)
  1. VALPROIC ACID [Suspect]
     Indication: MYOCLONIC EPILEPSY
     Dosage: 20 MG/KG, 1 IN 1 D, ORAL
     Route: 048

REACTIONS (7)
  - WHITE BLOOD CELL COUNT INCREASED [None]
  - RASH [None]
  - HAEMOPTYSIS [None]
  - PLATELET COUNT DECREASED [None]
  - CONVULSION [None]
  - ASPIRATION BRONCHIAL [None]
  - PULMONARY ALVEOLAR HAEMORRHAGE [None]
